FAERS Safety Report 13867289 (Version 2)
Quarter: 2018Q2

REPORT INFORMATION
  Report Type: Spontaneous
  Country: US (occurrence: US)
  Receive Date: 20170814
  Receipt Date: 20180524
  Transmission Date: 20180711
  Serious: No
  Sender: FDA-Public Use
  Company Number: US-ACADIA PHARMACEUTICALS INC.-ACA-2017-004671

PATIENT
  Sex: Male

DRUGS (29)
  1. CARBIDOPA AND LEVODOPA [Concomitant]
     Active Substance: CARBIDOPA\LEVODOPA
     Indication: PRODUCT USED FOR UNKNOWN INDICATION
     Dosage: 50-200 MG
     Dates: start: 20171127
  2. LATANOPROST. [Concomitant]
     Active Substance: LATANOPROST
     Dosage: 0.005 %, UNK
     Dates: start: 20180205
  3. NUPLAZID [Suspect]
     Active Substance: PIMAVANSERIN TARTRATE
     Indication: HALLUCINATION, VISUAL
     Dosage: 34 MG, QD
     Route: 048
     Dates: start: 20161005
  4. NUPLAZID [Suspect]
     Active Substance: PIMAVANSERIN TARTRATE
     Indication: DELUSION
     Dosage: 34 MG, QD
     Route: 048
  5. ESCITALOPRAM [Suspect]
     Active Substance: ESCITALOPRAM OXALATE
     Dosage: 20 MG
     Dates: start: 20171216, end: 20180214
  6. ALFUZOSIN [Concomitant]
     Active Substance: ALFUZOSIN
     Indication: PRODUCT USED FOR UNKNOWN INDICATION
     Dosage: 10 MG, UNK
     Dates: start: 20170918
  7. RIVASTIGMINE. [Concomitant]
     Active Substance: RIVASTIGMINE
     Dosage: UNK
     Dates: start: 20170403
  8. CARBIDOPA AND LEVODOPA [Concomitant]
     Active Substance: CARBIDOPA\LEVODOPA
     Dosage: 50-200 MG
     Dates: start: 20170605, end: 20180227
  9. CIPROFLOXACIN. [Concomitant]
     Active Substance: CIPROFLOXACIN
     Indication: PRODUCT USED FOR UNKNOWN INDICATION
     Dosage: 250 MG, UNK
     Dates: start: 20180103, end: 20180117
  10. ESCITALOPRAM [Suspect]
     Active Substance: ESCITALOPRAM OXALATE
     Indication: PRODUCT USED FOR UNKNOWN INDICATION
     Dosage: 20 MG, UNK
     Dates: start: 20180108
  11. ALEVE [Concomitant]
     Active Substance: NAPROXEN SODIUM
     Indication: PRODUCT USED FOR UNKNOWN INDICATION
     Dosage: 220 MG, UNK
     Dates: start: 20161011
  12. OCUVITE [Concomitant]
     Active Substance: VITAMINS
     Indication: PRODUCT USED FOR UNKNOWN INDICATION
     Dosage: UNK
     Dates: start: 20161011
  13. CEPHALEXIN. [Concomitant]
     Active Substance: CEPHALEXIN
     Indication: PRODUCT USED FOR UNKNOWN INDICATION
     Dosage: 500 MG
     Dates: start: 20180113, end: 20180127
  14. ESCITALOPRAM [Suspect]
     Active Substance: ESCITALOPRAM OXALATE
     Dosage: 20 MG
     Dates: start: 20171218, end: 20180216
  15. NUPLAZID [Suspect]
     Active Substance: PIMAVANSERIN TARTRATE
     Indication: PARKINSON^S DISEASE PSYCHOSIS
     Dosage: 34 MG, QD
     Route: 048
     Dates: start: 20170119
  16. RIVASTIGMINE. [Concomitant]
     Active Substance: RIVASTIGMINE
     Dosage: UNK
     Dates: start: 20171228
  17. PILOCARPINE. [Concomitant]
     Active Substance: PILOCARPINE
     Indication: PRODUCT USED FOR UNKNOWN INDICATION
     Dosage: 1% OP
     Dates: start: 20180110
  18. BRIMONIDINE [Concomitant]
     Active Substance: BRIMONIDINE TARTRATE
     Indication: PRODUCT USED FOR UNKNOWN INDICATION
     Dosage: 0.15 %, UNK
     Dates: start: 20171127
  19. BRIMONIDINE [Concomitant]
     Active Substance: BRIMONIDINE TARTRATE
     Dosage: 0.15 %, UNK
     Dates: start: 20171126, end: 20180224
  20. LATANOPROST. [Concomitant]
     Active Substance: LATANOPROST
     Indication: PRODUCT USED FOR UNKNOWN INDICATION
     Dosage: 0.005 %, UNK
     Dates: start: 20170508
  21. ESCITALOPRAM [Suspect]
     Active Substance: ESCITALOPRAM OXALATE
     Dosage: 20 MG
     Dates: start: 20171117, end: 20180116
  22. CARBIDOPA AND LEVODOPA [Concomitant]
     Active Substance: CARBIDOPA\LEVODOPA
     Dosage: 50-200 MG
     Dates: start: 20171126
  23. ESCITALOPRAM [Suspect]
     Active Substance: ESCITALOPRAM OXALATE
     Dosage: 20 MG
     Dates: start: 20170718, end: 20171219
  24. VITAMIN D3 [Concomitant]
     Active Substance: CHOLECALCIFEROL
     Indication: PRODUCT USED FOR UNKNOWN INDICATION
     Dosage: 2000 U
     Dates: start: 20161011
  25. RIVASTIGMINE. [Concomitant]
     Active Substance: RIVASTIGMINE
     Indication: PRODUCT USED FOR UNKNOWN INDICATION
     Dosage: UNK
     Dates: start: 20171229
  26. PILOCARPINE. [Concomitant]
     Active Substance: PILOCARPINE
     Dosage: 1% OP
     Dates: start: 20170822
  27. PROBIOTIC [Concomitant]
     Active Substance: PROBIOTICS NOS
     Indication: PRODUCT USED FOR UNKNOWN INDICATION
     Dosage: UNK
     Dates: start: 20161011
  28. TYLENOL [Concomitant]
     Active Substance: ACETAMINOPHEN
     Indication: PRODUCT USED FOR UNKNOWN INDICATION
     Dosage: 325 MG, UNK
     Dates: start: 20161011
  29. BRIMONIDINE [Concomitant]
     Active Substance: BRIMONIDINE TARTRATE
     Dosage: 0.15 %, UNK
     Dates: start: 20170508, end: 20180115

REACTIONS (4)
  - Hallucination [Unknown]
  - Confusional state [Unknown]
  - Tremor [Unknown]
  - Dysphagia [Unknown]
